FAERS Safety Report 4937367-1 (Version None)
Quarter: 2006Q1

REPORT INFORMATION
  Report Type: 
  Country: None (occurrence: None)
  Receive Date: 20060309
  Receipt Date: 20060224
  Transmission Date: 20060701
  Serious: Yes (Other)
  Sender: FDA-Public Use
  Company Number: PHBS2006BR03117

PATIENT
  Age: 6 Year
  Sex: Male
  Weight: 21 kg

DRUGS (2)
  1. RITALIN LA [Suspect]
     Indication: PSYCHOMOTOR HYPERACTIVITY
     Dosage: 20 MG, QD
     Route: 048
     Dates: start: 20060214
  2. RISPERIDONE [Concomitant]
     Dosage: UNK, BID
     Dates: start: 20060214

REACTIONS (4)
  - CHEST PAIN [None]
  - PHARYNGITIS [None]
  - PYREXIA [None]
  - TACHYCARDIA [None]
